FAERS Safety Report 23656878 (Version 2)
Quarter: 2024Q2

REPORT INFORMATION
  Report Type: Other
  Country: US (occurrence: None)
  Receive Date: 20240321
  Receipt Date: 20240402
  Transmission Date: 20240716
  Serious: Yes (Other)
  Sender: FDA-Public Use
  Company Number: US-ROCHE-3470205

PATIENT
  Age: 17 Year
  Sex: Female
  Weight: 70.5 kg

DRUGS (3)
  1. CELLCEPT [Suspect]
     Active Substance: MYCOPHENOLATE MOFETIL
     Indication: Antiphospholipid syndrome
     Dosage: DAILY DOSE: 2000MG
     Route: 048
     Dates: start: 20210602, end: 20231201
  2. ASPIRIN [Concomitant]
     Active Substance: ASPIRIN
  3. RIVAROXABAN [Concomitant]
     Active Substance: RIVAROXABAN
     Indication: Antiphospholipid syndrome
     Dates: start: 20220216, end: 20231201

REACTIONS (4)
  - Cerebral haemorrhage [Unknown]
  - Abortion spontaneous [Unknown]
  - Maternal exposure before pregnancy [Unknown]
  - Maternal exposure during pregnancy [Unknown]

NARRATIVE: CASE EVENT DATE: 20240213
